FAERS Safety Report 10421308 (Version 1)
Quarter: 2014Q3

REPORT INFORMATION
  Report Type: Spontaneous
  Country: US (occurrence: US)
  Receive Date: 20140831
  Receipt Date: 20140831
  Transmission Date: 20150326
  Serious: No
  Sender: FDA-Public Use
  Company Number: US-TEVA-500330USA

PATIENT
  Sex: Female

DRUGS (1)
  1. ENJUVIA [Suspect]
     Active Substance: ESTROGENS, CONJUGATED SYNTHETIC B
     Indication: PRODUCT USED FOR UNKNOWN INDICATION
     Route: 048

REACTIONS (7)
  - Dry skin [Unknown]
  - Weight increased [Unknown]
  - Pruritus [Unknown]
  - Hair texture abnormal [Unknown]
  - Fatigue [Unknown]
  - Skin wrinkling [Unknown]
  - Mastoptosis [Unknown]
